FAERS Safety Report 17035888 (Version 2)
Quarter: 2020Q1

REPORT INFORMATION
  Report Type: Spontaneous
  Country: US (occurrence: US)
  Receive Date: 20191115
  Receipt Date: 20200131
  Transmission Date: 20200409
  Serious: No
  Sender: FDA-Public Use
  Company Number: US-SUNOVION-2019SUN004869

PATIENT
  Sex: Male

DRUGS (1)
  1. LONHALA MAGNAIR [Suspect]
     Active Substance: GLYCOPYRROLATE
     Dosage: 1 VIAL PER DAY
     Route: 055

REACTIONS (4)
  - Off label use [Unknown]
  - Throat irritation [Unknown]
  - Product dose omission [Unknown]
  - Cough [Unknown]
